FAERS Safety Report 12373388 (Version 4)
Quarter: 2017Q1

REPORT INFORMATION
  Report Type: Report from Study
  Country: BR (occurrence: BR)
  Receive Date: 20160516
  Receipt Date: 20170112
  Transmission Date: 20170428
  Serious: Yes (Other)
  Sender: FDA-Public Use
  Company Number: BR-JNJFOC-20160512458

PATIENT
  Age: 48 Year
  Sex: Female
  Weight: 61 kg

DRUGS (11)
  1. PHENYTOIN. [Concomitant]
     Active Substance: PHENYTOIN
  2. FORXIGA [Concomitant]
     Active Substance: DAPAGLIFLOZIN
  3. DIAMICRON [Concomitant]
     Active Substance: GLICLAZIDE
     Route: 065
  4. SELOZOK [Concomitant]
     Active Substance: METOPROLOL SUCCINATE
  5. CEFSPAN [Concomitant]
     Active Substance: CEFIXIME
     Route: 065
  6. HIDANTAL [Concomitant]
     Active Substance: PHENYTOIN SODIUM
     Route: 065
  7. VERUTEX B [Concomitant]
     Route: 065
  8. SIMPONI [Suspect]
     Active Substance: GOLIMUMAB
     Indication: RHEUMATOID ARTHRITIS
     Route: 058
     Dates: start: 20150413
  9. GLIFAGE [Concomitant]
     Active Substance: METFORMIN HYDROCHLORIDE
  10. OXCARBAZEPINE. [Concomitant]
     Active Substance: OXCARBAZEPINE
  11. ATENOLOL. [Concomitant]
     Active Substance: ATENOLOL
     Route: 065

REACTIONS (14)
  - Nosocomial infection [Unknown]
  - Sensory loss [Unknown]
  - Peripheral swelling [Unknown]
  - Wrong technique in product usage process [Unknown]
  - Localised infection [Not Recovered/Not Resolved]
  - Inflammation [Unknown]
  - Arrhythmia [Unknown]
  - Muscular weakness [Unknown]
  - Injection site pain [Unknown]
  - Injection site haemorrhage [Unknown]
  - Respiratory tract infection [Unknown]
  - Arthralgia [Unknown]
  - Device malfunction [Unknown]
  - Pain in extremity [Unknown]

NARRATIVE: CASE EVENT DATE: 201508
